FAERS Safety Report 8550701-9 (Version None)
Quarter: 2012Q3

REPORT INFORMATION
  Report Type: 
  Country: None (occurrence: None)
  Receive Date: 20120730
  Receipt Date: 20120725
  Transmission Date: 20120928
  Serious: Yes (Other)
  Sender: FDA-Public Use
  Company Number: UY-GLAXOSMITHKLINE-A0987278A

PATIENT
  Age: 48 Year
  Sex: Female

DRUGS (3)
  1. TRASTUZUMAB [Concomitant]
  2. CAPECITABINE [Concomitant]
     Indication: BREAST CANCER METASTATIC
  3. LAPATINIB [Suspect]
     Indication: BREAST CANCER METASTATIC
     Route: 048

REACTIONS (2)
  - BRONCHOSPASM [None]
  - ECZEMA [None]
